FAERS Safety Report 23262372 (Version 3)
Quarter: 2024Q1

REPORT INFORMATION
  Report Type: Spontaneous
  Country: IE (occurrence: IE)
  Receive Date: 20231205
  Receipt Date: 20240109
  Transmission Date: 20240409
  Serious: Yes (Other)
  Sender: FDA-Public Use
  Company Number: IE-MYLANLABS-2023M1126605

PATIENT
  Age: 48 Year
  Sex: Female

DRUGS (1)
  1. CLOZARIL [Suspect]
     Active Substance: CLOZAPINE
     Indication: Schizophrenia
     Dosage: UNK
     Route: 048
     Dates: start: 20191014

REACTIONS (5)
  - Neutropenia [Recovered/Resolved]
  - Nasopharyngitis [Recovering/Resolving]
  - White blood cell count decreased [Unknown]
  - Neutrophil count decreased [Recovered/Resolved]
  - Eosinophil count decreased [Unknown]

NARRATIVE: CASE EVENT DATE: 20231124
